FAERS Safety Report 4912984-3 (Version None)
Quarter: 2006Q1

REPORT INFORMATION
  Report Type: 
  Country: None (occurrence: None)
  Receive Date: 20060210
  Receipt Date: 20060130
  Transmission Date: 20060701
  Serious: Yes (Death, Other)
  Sender: FDA-Public Use
  Company Number: HQWYE610901FEB06

PATIENT
  Age: 64 Year
  Sex: Female

DRUGS (2)
  1. PREMPRO [Suspect]
  2. PREMARIN [Suspect]

REACTIONS (5)
  - BREAST CANCER METASTATIC [None]
  - METASTASES TO CENTRAL NERVOUS SYSTEM [None]
  - METASTASES TO LIVER [None]
  - METASTASES TO LUNG [None]
  - OESTROGEN RECEPTOR ASSAY POSITIVE [None]
